FAERS Safety Report 11361361 (Version 2)
Quarter: 2015Q3

REPORT INFORMATION
  Report Type: Spontaneous
  Country: BR (occurrence: BR)
  Receive Date: 20150810
  Receipt Date: 20150818
  Transmission Date: 20151125
  Serious: Yes (Hospitalization)
  Sender: FDA-Public Use
  Company Number: BR-PFIZER INC-2015259734

PATIENT
  Sex: Female
  Weight: 49 kg

DRUGS (6)
  1. FRONTAL [Suspect]
     Active Substance: ALPRAZOLAM
     Indication: DEPRESSION
     Dosage: UNK
     Route: 048
     Dates: start: 2014
  2. PURAN [Concomitant]
     Active Substance: LEVOTHYROXINE SODIUM
     Indication: THYROID DISORDER
     Dosage: 1 TABLET PER DAY
     Dates: start: 2000
  3. SERTRALINE [Concomitant]
     Active Substance: SERTRALINE HYDROCHLORIDE
     Indication: ANXIETY
     Dosage: ^1 PER DAY^
     Dates: start: 1995
  4. FRONTAL [Suspect]
     Active Substance: ALPRAZOLAM
     Indication: INSOMNIA
     Dosage: 0.5 MG (1 TABLET) PER DAY
     Route: 048
     Dates: start: 1985, end: 201411
  5. PANTOPRAZOLE [Concomitant]
     Active Substance: PANTOPRAZOLE SODIUM
     Indication: GASTRIC DISORDER
     Dosage: 1 TABLET PER DAY
  6. BROMOPRIDE [Concomitant]
     Active Substance: BROMOPRIDE
     Indication: GASTRIC DISORDER
     Dosage: 2 TABLETS PER DAY
     Dates: start: 201411

REACTIONS (4)
  - Post procedural complication [Unknown]
  - Blood cholesterol increased [Recovering/Resolving]
  - Spinal pain [Unknown]
  - Ovarian cancer [Unknown]

NARRATIVE: CASE EVENT DATE: 201505
